FAERS Safety Report 16724168 (Version 1)
Quarter: 2019Q3

REPORT INFORMATION
  Report Type: Spontaneous
  Country: US (occurrence: US)
  Receive Date: 20190821
  Receipt Date: 20190821
  Transmission Date: 20191005
  Serious: No
  Sender: FDA-Public Use
  Company Number: US-TEVA-2019-US-1093841

PATIENT
  Sex: Female

DRUGS (1)
  1. TRI-SPRINTEC [Suspect]
     Active Substance: ETHINYL ESTRADIOL\NORGESTIMATE
     Dosage: 0.035 MG
     Route: 065

REACTIONS (2)
  - Feeling abnormal [Unknown]
  - Therapeutic product effect incomplete [Unknown]
